FAERS Safety Report 10885079 (Version 1)
Quarter: 2015Q1

REPORT INFORMATION
  Report Type: Spontaneous
  Country: US (occurrence: None)
  Receive Date: 20150227
  Receipt Date: 20150227
  Transmission Date: 20150721
  Serious: Yes (Life-Threatening, Hospitalization)
  Sender: FDA-Public Use
  Company Number: None

PATIENT
  Age: 65 Year
  Sex: Female
  Weight: 119.5 kg

DRUGS (5)
  1. CISATRACURIUM [Suspect]
     Active Substance: CISATRACURIUM
     Indication: NERVE BLOCK
     Dates: start: 20140204, end: 20140204
  2. CEFAZOLIN/DEXTROSE [Suspect]
     Active Substance: CEFAZOLIN\DEXTROSE
     Indication: POST PROCEDURAL INFECTION
     Dates: start: 20140204, end: 20140204
  3. CEFAZOLIN/DEXTROSE [Suspect]
     Active Substance: CEFAZOLIN\DEXTROSE
     Indication: PROPHYLAXIS
     Dates: start: 20140204, end: 20140204
  4. CEFAZOLIN/DEXTROSE [Suspect]
     Active Substance: CEFAZOLIN\DEXTROSE
     Indication: SURGERY
     Dates: start: 20140204, end: 20140204
  5. CISATRACURIUM [Suspect]
     Active Substance: CISATRACURIUM
     Indication: SURGERY
     Dates: start: 20140204, end: 20140204

REACTIONS (3)
  - Respiratory acidosis [None]
  - Hypoventilation [None]
  - Anaphylactic reaction [None]

NARRATIVE: CASE EVENT DATE: 20140204
